FAERS Safety Report 7791855-1 (Version None)
Quarter: 2011Q4

REPORT INFORMATION
  Report Type: 
  Country: None (occurrence: None)
  Receive Date: 20111003
  Receipt Date: 20110921
  Transmission Date: 20120403
  Serious: No
  Sender: FDA-Public Use
  Company Number: US-JNJFOC-20110909185

PATIENT
  Sex: Male
  Weight: 113.4 kg

DRUGS (13)
  1. INVEGA SUSTENNA [Suspect]
     Indication: SCHIZOPHRENIA
     Route: 030
     Dates: start: 20110918
  2. SEROQUEL [Concomitant]
     Indication: SCHIZOPHRENIA
     Route: 048
     Dates: start: 20110823
  3. MULTIVITAMIN [Concomitant]
     Route: 048
  4. FOLIC ACID [Concomitant]
     Route: 048
  5. GEODON [Concomitant]
     Indication: SCHIZOPHRENIA
     Route: 048
     Dates: start: 20110823
  6. ZOCOR [Concomitant]
     Indication: BLOOD CHOLESTEROL INCREASED
     Route: 048
     Dates: start: 20110823
  7. BENADRYL [Concomitant]
     Indication: SLEEP DISORDER
     Route: 048
     Dates: start: 20110823
  8. LOTENSIN [Concomitant]
     Indication: HYPERTENSION
     Route: 048
     Dates: start: 20110823
  9. FOLIC ACID [Concomitant]
     Route: 048
  10. WELLBUTRIN [Concomitant]
     Indication: DEPRESSION
     Route: 048
     Dates: start: 20110823
  11. ASPIRIN [Concomitant]
     Route: 048
  12. ADVAIR DISKUS 100/50 [Concomitant]
     Indication: CHRONIC OBSTRUCTIVE PULMONARY DISEASE
     Route: 048
     Dates: start: 20110823
  13. DEPAKOTE [Concomitant]
     Indication: DRUG THERAPY
     Route: 048
     Dates: start: 20110823

REACTIONS (2)
  - DEVICE LEAKAGE [None]
  - DRUG DOSE OMISSION [None]
